FAERS Safety Report 8409249-4 (Version None)
Quarter: 2012Q2

REPORT INFORMATION
  Report Type: 
  Country: None (occurrence: None)
  Receive Date: 20120604
  Receipt Date: 20120518
  Transmission Date: 20120825
  Serious: No
  Sender: FDA-Public Use
  Company Number: US-ASTRAZENECA-2012SE18604

PATIENT
  Age: 62 Year
  Sex: Female

DRUGS (8)
  1. ATACAND [Suspect]
     Route: 048
  2. ATACAND [Suspect]
     Route: 048
  3. ATACAND [Suspect]
     Route: 048
  4. ATACAND [Suspect]
     Route: 048
     Dates: start: 20000101
  5. ATACAND [Suspect]
     Route: 048
  6. ATACAND [Suspect]
     Route: 048
  7. ATACAND [Suspect]
     Route: 048
  8. NEXIUM [Suspect]
     Route: 048

REACTIONS (2)
  - INTENTIONAL DRUG MISUSE [None]
  - BLOOD PRESSURE INCREASED [None]
